FAERS Safety Report 5429342-8 (Version None)
Quarter: 2007Q3

REPORT INFORMATION
  Report Type: 
  Country: None (occurrence: None)
  Receive Date: 20070827
  Receipt Date: 20070816
  Transmission Date: 20080115
  Serious: Yes (Life-Threatening)
  Sender: FDA-Public Use
  Company Number: 2007-01904

PATIENT
  Age: 65 Year
  Sex: Male
  Weight: 59 kg

DRUGS (9)
  1. VELCADE [Suspect]
     Indication: MULTIPLE MYELOMA
     Dosage: 1.00 MG/M2, INTRAVENOUS
     Route: 042
     Dates: start: 20070320, end: 20070703
  2. DEXAMETHASONE TAB [Suspect]
     Indication: MULTIPLE MYELOMA
     Dosage: 20 MG, INTRAVENOUS
     Route: 042
     Dates: start: 20070320, end: 20070526
  3. PRIMPERAN TAB [Concomitant]
  4. BAKTAR (SULFAMETHOXAZOLE, TRIMETHOPRIM) [Concomitant]
  5. CIPROXAN (CIPROFLOXACIN HYDROCHLORIDE) TABLET [Concomitant]
  6. BASEN (VOGLIBOSE) [Concomitant]
  7. AMARYL [Concomitant]
  8. LANSOPRAZOLE [Concomitant]
  9. MAGNESIUM OXIDE (MAGNESIUM OXIDE) [Concomitant]

REACTIONS (6)
  - ASPARTATE AMINOTRANSFERASE INCREASED [None]
  - HERPES ZOSTER [None]
  - HYPOAESTHESIA [None]
  - NAUSEA [None]
  - PLATELET COUNT DECREASED [None]
  - URINARY TRACT INFECTION [None]
